FAERS Safety Report 7588820-6 (Version None)
Quarter: 2011Q3

REPORT INFORMATION
  Report Type: 
  Country: None (occurrence: None)
  Receive Date: 20110705
  Receipt Date: 20110701
  Transmission Date: 20111222
  Serious: Yes (Other)
  Sender: FDA-Public Use
  Company Number: US-JNJFOC-20110606626

PATIENT

DRUGS (5)
  1. BORTEZOMIB [Suspect]
     Indication: MULTIPLE MYELOMA
     Route: 042
  2. ACYCLOVIR [Concomitant]
     Indication: PROPHYLAXIS
     Route: 048
  3. WARFARIN SODIUM [Concomitant]
     Indication: THROMBOSIS PROPHYLAXIS
     Route: 065
  4. THALIDOMIDE [Suspect]
     Indication: MULTIPLE MYELOMA
     Dosage: SIX, 28 DAYS CYCLES: 200 MG ADMINISTERED THROUGHOUT THE STUDY
     Route: 048
  5. DOXORUBICIN HYDROCHLORIDE [Suspect]
     Indication: MULTIPLE MYELOMA
     Route: 042

REACTIONS (1)
  - HYPERURICAEMIA [None]
